FAERS Safety Report 13586337 (Version 2)
Quarter: 2017Q3

REPORT INFORMATION
  Report Type: Spontaneous
  Country: JP (occurrence: JP)
  Receive Date: 20170526
  Receipt Date: 20170706
  Transmission Date: 20171127
  Serious: Yes (Other)
  Sender: FDA-Public Use
  Company Number: JP-ELI_LILLY_AND_COMPANY-JP201705010188

PATIENT
  Age: 67 Year
  Sex: Male

DRUGS (2)
  1. ERBITUX [Suspect]
     Active Substance: CETUXIMAB
     Indication: ORAL NEOPLASM
     Dosage: 60 MG, UNKNOWN
     Route: 041
     Dates: start: 20150707
  2. ERBITUX [Suspect]
     Active Substance: CETUXIMAB
     Dosage: 380 MG, WEEKLY (1/W)
     Route: 041
     Dates: start: 20150715, end: 20150826

REACTIONS (1)
  - Embolism [Recovered/Resolved]

NARRATIVE: CASE EVENT DATE: 20150930
